FAERS Safety Report 5484588-8 (Version None)
Quarter: 2007Q4

REPORT INFORMATION
  Report Type: 
  Country: None (occurrence: None)
  Receive Date: 20071012
  Receipt Date: 20071002
  Transmission Date: 20080405
  Serious: Yes (Other)
  Sender: FDA-Public Use
  Company Number: FR-PFIZER INC-2007082995

PATIENT
  Age: 81 Year
  Sex: Male

DRUGS (3)
  1. AMLOR [Suspect]
  2. ATACAND [Concomitant]
  3. ALLOPURINOL [Concomitant]
     Indication: GOUT

REACTIONS (1)
  - PULMONARY FIBROSIS [None]
